FAERS Safety Report 15571144 (Version 1)
Quarter: 2018Q4

REPORT INFORMATION
  Report Type: Spontaneous
  Country: IN (occurrence: IN)
  Receive Date: 20181031
  Receipt Date: 20181031
  Transmission Date: 20190205
  Serious: Yes (Life-Threatening, Hospitalization)
  Sender: FDA-Public Use
  Company Number: IN-MYLANLABS-2018M1079270

PATIENT
  Age: 35 Year
  Sex: Male

DRUGS (1)
  1. DISULFIRAM. [Suspect]
     Active Substance: DISULFIRAM
     Indication: ALCOHOLISM
     Route: 058

REACTIONS (11)
  - Altered state of consciousness [Recovering/Resolving]
  - Hypotonia [Unknown]
  - Metabolic acidosis [Unknown]
  - Hyperhidrosis [Unknown]
  - Toxic encephalopathy [Recovering/Resolving]
  - Generalised tonic-clonic seizure [Recovering/Resolving]
  - Peripheral sensory neuropathy [Recovering/Resolving]
  - Toxicity to various agents [Recovering/Resolving]
  - Respiratory rate decreased [Unknown]
  - Peripheral motor neuropathy [Recovering/Resolving]
  - Blood pressure fluctuation [Unknown]
